FAERS Safety Report 16119031 (Version 1)
Quarter: 2019Q1

REPORT INFORMATION
  Report Type: Spontaneous
  Country: US (occurrence: US)
  Receive Date: 20190326
  Receipt Date: 20190326
  Transmission Date: 20190418
  Serious: No
  Sender: FDA-Public Use
  Company Number: US-BAYER-2019-057546

PATIENT
  Sex: Female

DRUGS (2)
  1. BETASERON [Suspect]
     Active Substance: INTERFERON BETA-1B
     Dosage: UNK
  2. BETACONNECT [Suspect]
     Active Substance: DEVICE

REACTIONS (4)
  - Product availability issue [None]
  - Influenza [None]
  - Product dose omission [None]
  - Injection site inflammation [None]
